FAERS Safety Report 7169931-6 (Version None)
Quarter: 2010Q4

REPORT INFORMATION
  Report Type: 
  Country: None (occurrence: None)
  Receive Date: 20101214
  Receipt Date: 20101214
  Transmission Date: 20110411
  Serious: Yes (Hospitalization)
  Sender: FDA-Public Use
  Company Number: None

PATIENT
  Sex: Male
  Weight: 75.5 kg

DRUGS (6)
  1. PEG-L-ASPARAGINASE (PEGASPARGASE, ONCOSPAR) [Suspect]
     Dosage: 8975 IU
     Dates: end: 20101018
  2. VINCRISTINE SULFATE [Suspect]
     Dosage: 8 MG
     Dates: end: 20101015
  3. CYCLOPHOSPHAMIDE [Suspect]
     Dosage: 3650 MG
     Dates: end: 20100924
  4. CYTARABINE [Suspect]
     Dosage: 2224 MG
     Dates: end: 20101004
  5. MERCAPTOPURINE [Suspect]
     Dosage: 3200 MG
     Dates: end: 20101007
  6. METHOTREXATE [Suspect]
     Dosage: 60 MG
     Dates: end: 20100930

REACTIONS (2)
  - NASAL CONGESTION [None]
  - THROAT IRRITATION [None]
